FAERS Safety Report 4681829-1 (Version None)
Quarter: 2005Q2

REPORT INFORMATION
  Report Type: 
  Country: None (occurrence: None)
  Receive Date: 20050602
  Receipt Date: 20050523
  Transmission Date: 20051028
  Serious: Yes (Other)
  Sender: FDA-Public Use
  Company Number: 2005079899

PATIENT
  Age: 55 Year
  Sex: Male

DRUGS (3)
  1. SOMAVERT [Suspect]
     Indication: ACROMEGALY
     Dosage: 80 MG (80 MG, QD), SUBCUTANEOUS
     Route: 058
     Dates: start: 20050101
  2. LEVOTHYROXINE SODIUM [Concomitant]
  3. HYDROCORTISONE [Concomitant]

REACTIONS (4)
  - DIPLOPIA [None]
  - EYELID PTOSIS [None]
  - NECROSIS [None]
  - NEOPLASM PROGRESSION [None]
